FAERS Safety Report 14022139 (Version 1)
Quarter: 2017Q3

REPORT INFORMATION
  Report Type: Spontaneous
  Country: US (occurrence: None)
  Receive Date: 20170928
  Receipt Date: 20170928
  Transmission Date: 20171128
  Serious: Yes (Other)
  Sender: FDA-Public Use
  Company Number: None

PATIENT
  Age: 67 Year
  Sex: Female

DRUGS (1)
  1. REVLIMID [Suspect]
     Active Substance: LENALIDOMIDE
     Indication: PLASMA CELL MYELOMA
     Route: 048
     Dates: start: 20170726

REACTIONS (4)
  - Bandaemia [None]
  - Febrile neutropenia [None]
  - Oropharyngeal pain [None]
  - Respiratory disorder [None]

NARRATIVE: CASE EVENT DATE: 20170820
